FAERS Safety Report 23631378 (Version 4)
Quarter: 2025Q2

REPORT INFORMATION
  Report Type: Spontaneous
  Country: FI (occurrence: FI)
  Receive Date: 20240314
  Receipt Date: 20250409
  Transmission Date: 20250716
  Serious: Yes (Hospitalization, Other)
  Sender: SANOFI AVENTIS
  Company Number: FI-SANOFI-01971031

PATIENT
  Age: 71 Year
  Sex: Female

DRUGS (16)
  1. LANTUS [Suspect]
     Active Substance: INSULIN GLARGINE
     Indication: Type 2 diabetes mellitus
     Dosage: 60 IU, QD
     Dates: end: 202312
  2. LANTUS [Suspect]
     Active Substance: INSULIN GLARGINE
     Dosage: UNK U, QD, 13-14 UNITS
     Route: 058
  3. INSULIN ASPART [Suspect]
     Active Substance: INSULIN ASPART
     Dates: end: 202312
  4. INSULIN ASPART [Suspect]
     Active Substance: INSULIN ASPART
  5. REPATHA [Concomitant]
     Active Substance: EVOLOCUMAB
  6. FIASP [Concomitant]
     Active Substance: INSULIN ASPART
     Dosage: DOSE: DEPENDING ON WHAT YOU EAT. MAXIMUM 7 UNITS PER DAY
     Route: 058
  7. CARDACE [RAMIPRIL] [Concomitant]
  8. AMLODIPINE BESYLATE [Concomitant]
     Active Substance: AMLODIPINE BESYLATE
     Dosage: 5 MG, BID
  9. EDOXABAN TOSYLATE [Concomitant]
     Active Substance: EDOXABAN TOSYLATE
  10. PLAVIX [Concomitant]
     Active Substance: CLOPIDOGREL BISULFATE
  11. ORMOX [Concomitant]
     Dosage: 20 MG, BID
  12. FELODIPINE [Concomitant]
     Active Substance: FELODIPINE
     Dosage: 5 MG, BID
  13. PANTOPRAZOLE SODIUM [Concomitant]
     Active Substance: PANTOPRAZOLE SODIUM
  14. LEVOTHYROXINE [Concomitant]
     Active Substance: LEVOTHYROXINE
  15. NORFLEX [Concomitant]
     Active Substance: ORPHENADRINE CITRATE
  16. LORATADIN RATIOPHARM [Concomitant]

REACTIONS (8)
  - Myocardial infarction [Not Recovered/Not Resolved]
  - Influenza [Not Recovered/Not Resolved]
  - Ageusia [Unknown]
  - Anosmia [Unknown]
  - Blood glucose decreased [Recovered/Resolved]
  - Blood glucose increased [Unknown]
  - Wrong product administered [Unknown]
  - Intentional device use issue [Unknown]

NARRATIVE: CASE EVENT DATE: 20231217
